FAERS Safety Report 4494328-7 (Version None)
Quarter: 2004Q4

REPORT INFORMATION
  Report Type: 
  Country: None (occurrence: None)
  Receive Date: 20041105
  Receipt Date: 20041026
  Transmission Date: 20050328
  Serious: Yes (Hospitalization)
  Sender: FDA-Public Use
  Company Number: IT-GLAXOSMITHKLINE-B0350526A

PATIENT
  Age: 74 Year
  Sex: Male

DRUGS (3)
  1. AUGMENTIN '125' [Suspect]
     Indication: TOOTH ABSCESS
     Dosage: 2U PER DAY
     Route: 048
     Dates: start: 20041015, end: 20041015
  2. ASPIRIN [Concomitant]
     Route: 048
  3. TRIATEC [Concomitant]
     Route: 048

REACTIONS (3)
  - ATRIAL FLUTTER [None]
  - DYSPNOEA [None]
  - PYREXIA [None]
